FAERS Safety Report 9635920 (Version 1)
Quarter: 2013Q4

REPORT INFORMATION
  Report Type: Report from Study
  Country: US (occurrence: US)
  Receive Date: 20131021
  Receipt Date: 20131021
  Transmission Date: 20140711
  Serious: Yes (Hospitalization)
  Sender: FDA-Public Use
  Company Number: US-ROCHE-1290136

PATIENT
  Age: 21 Year
  Sex: Male
  Weight: 50.4 kg

DRUGS (3)
  1. BEVACIZUMAB [Suspect]
     Indication: RHABDOMYOSARCOMA
     Dosage: OVER 30-90 MINUTES ON DAY 1 OF 21 DAY CYCLE, LAST DOSE ON:01/JUL/2013
     Route: 042
     Dates: start: 20130201
  2. CYCLOPHOSPHAMIDE [Suspect]
     Indication: RHABDOMYOSARCOMA
     Dosage: OVER 30-60 MINUTES ON DAY1 OF 21 DAY CYCLE , LAST DOSE ADMINISTERED ON:01/JUL/2013
     Route: 042
     Dates: start: 20130201
  3. VINORELBINE [Suspect]
     Indication: RHABDOMYOSARCOMA
     Dosage: OVER 6-10MINS ON DAYS 1 AND 8 OF 21 DAY CYCLE LAST DOSE PRIOR TO EVENT: 09/JUL/2013
     Route: 042
     Dates: start: 20130201

REACTIONS (3)
  - Pain in jaw [Recovering/Resolving]
  - Dental caries [Recovering/Resolving]
  - Stomatitis [Recovering/Resolving]
